FAERS Safety Report 6834690-0 (Version None)
Quarter: 2010Q3

REPORT INFORMATION
  Report Type: 
  Country: None (occurrence: None)
  Receive Date: 20100712
  Receipt Date: 20080207
  Transmission Date: 20110219
  Serious: No
  Sender: FDA-Public Use
  Company Number: US-PFIZER INC-2007032840

PATIENT
  Sex: Female
  Weight: 50 kg

DRUGS (1)
  1. CHANTIX [Suspect]
     Indication: SMOKING CESSATION THERAPY
     Dates: start: 20070101

REACTIONS (6)
  - ABDOMINAL DISTENSION [None]
  - ANGER [None]
  - DIARRHOEA [None]
  - DISORIENTATION [None]
  - FLATULENCE [None]
  - NAUSEA [None]
